FAERS Safety Report 6366690-1 (Version None)
Quarter: 2009Q3

REPORT INFORMATION
  Report Type: 
  Country: None (occurrence: None)
  Receive Date: 20090915
  Receipt Date: 20090903
  Transmission Date: 20100115
  Serious: Yes (Death)
  Sender: FDA-Public Use
  Company Number: 2007-04188

PATIENT
  Age: 62 Year
  Sex: Male

DRUGS (29)
  1. VELCADE [Suspect]
     Indication: MULTIPLE MYELOMA
     Dosage: 1.2 MG, INTRAVENOUS
     Route: 042
     Dates: start: 20071121, end: 20071127
  2. LAMIVUDINE [Concomitant]
  3. SULFAMETHOXAZOLE W/TRIMETHOPRIM (SULFAMETHOXAZOLE, TRIMETHOPRIM) [Concomitant]
  4. ITRACONAZOLE [Concomitant]
  5. OMEPRAZOLE [Concomitant]
  6. MAGNESIUM OXIDE (MAGNESIUM OXIDE) [Concomitant]
  7. ZOLPIDEM TARTRATE [Concomitant]
  8. GOSHAJINKIGAN (HERBAL EXTRACTS NOS) [Concomitant]
  9. POTASSIUM-MAGNESIUM-L-ASPARAGINATE ^BRAUN^ (MAGNESIUM ASPARTATE, ASPAR [Concomitant]
  10. ACETAMINOPHEN [Concomitant]
  11. FENTANYL-100 [Concomitant]
  12. FIRSTCIN (CEFOZOPRAN HYDROCHLORIDE) [Concomitant]
  13. DEXAMETHASONE [Concomitant]
  14. SODIUM BICARBONATE [Concomitant]
  15. VERAPAMIL HYDROCHLORIDE [Concomitant]
  16. RYTHMODAN P (DISOPYRAMIDE PHOSPHATE) [Concomitant]
  17. METHYLPREDNISOLONE [Concomitant]
  18. PANTHENOL (PANTHENOL) [Concomitant]
  19. CARBAZOCHROME (CARBAZOCHROME) [Concomitant]
  20. MIDAZOLAM HCL [Concomitant]
  21. DIAZEPAM [Concomitant]
  22. OMEPRAZOLE [Concomitant]
  23. ORGARAN [Concomitant]
  24. SULBACTAM (SULBACTAM) [Concomitant]
  25. CIPROFLOXACIN HCL [Concomitant]
  26. VORICONAZOLE [Concomitant]
  27. RANITIDINE HYDROCHLORIDE [Concomitant]
  28. POTASSIUM CHLORIDE [Concomitant]
  29. FUROSEMIDE [Concomitant]

REACTIONS (7)
  - CARDIAC FAILURE CONGESTIVE [None]
  - DISSEMINATED INTRAVASCULAR COAGULATION [None]
  - EPISTAXIS [None]
  - HYPERURICAEMIA [None]
  - PNEUMONIA [None]
  - RESPIRATORY TRACT HAEMORRHAGE [None]
  - TUMOUR LYSIS SYNDROME [None]
